FAERS Safety Report 14968649 (Version 1)
Quarter: 2018Q2

REPORT INFORMATION
  Report Type: Spontaneous
  Country: CN (occurrence: CN)
  Receive Date: 20180604
  Receipt Date: 20180604
  Transmission Date: 20180711
  Serious: Yes (Other)
  Sender: FDA-Public Use
  Company Number: CN-PFIZER INC-2018221068

PATIENT
  Age: 53 Year
  Sex: Male
  Weight: 70 kg

DRUGS (2)
  1. CELEBREX [Suspect]
     Active Substance: CELECOXIB
     Indication: HAEMORRHOIDS
     Dosage: 0.2 G, 2X/DAY
     Route: 048
     Dates: start: 20180313, end: 20180314
  2. CELEBREX [Suspect]
     Active Substance: CELECOXIB
     Indication: ANAL FISSURE

REACTIONS (3)
  - Pruritus [Recovering/Resolving]
  - Erythema multiforme [Recovering/Resolving]
  - Skin erosion [Recovering/Resolving]

NARRATIVE: CASE EVENT DATE: 20180314
